FAERS Safety Report 6188203-X (Version None)
Quarter: 2009Q2

REPORT INFORMATION
  Report Type: 
  Country: None (occurrence: None)
  Receive Date: 20090513
  Receipt Date: 20090508
  Transmission Date: 20091009
  Serious: Yes (Disabling)
  Sender: FDA-Public Use
  Company Number: IE-PFIZER INC-2009186615

PATIENT
  Age: 76 Year

DRUGS (4)
  1. LIPITOR [Suspect]
     Indication: BLOOD CHOLESTEROL INCREASED
     Dosage: 10 MG, 1X/DAY
     Dates: start: 20090223
  2. METOPROLOL TARTRATE [Concomitant]
  3. COZAAR [Concomitant]
  4. WARFARIN [Concomitant]

REACTIONS (1)
  - VISUAL IMPAIRMENT [None]
